FAERS Safety Report 14646832 (Version 1)
Quarter: 2018Q1

REPORT INFORMATION
  Report Type: Spontaneous
  Country: GB (occurrence: GB)
  Receive Date: 20180316
  Receipt Date: 20180316
  Transmission Date: 20180509
  Serious: Yes (Other)
  Sender: FDA-Public Use
  Company Number: GB-BAUSCH-BL-2018-006609

PATIENT
  Age: 9 Year
  Sex: Male
  Weight: 40 kg

DRUGS (2)
  1. PREDNISOLONE. [Suspect]
     Active Substance: PREDNISOLONE
     Indication: ASTHMA
     Dosage: DAY 10 MG PRESCRIBED DAILY
     Route: 065
  2. PREDNISOLONE. [Suspect]
     Active Substance: PREDNISOLONE
     Dosage: GIVEN 10MG PER ML FOR HOME. GIVEN 10X DOSE BY ACCIDENT
     Route: 065

REACTIONS (3)
  - Adrenal insufficiency [Recovering/Resolving]
  - Accidental overdose [Unknown]
  - Drug dispensing error [Unknown]
